FAERS Safety Report 12388919 (Version 1)
Quarter: 2016Q2

REPORT INFORMATION
  Report Type: Spontaneous
  Country: US (occurrence: None)
  Receive Date: 20160519
  Receipt Date: 20160519
  Transmission Date: 20160815
  Serious: Yes (Life-Threatening, Hospitalization, Other)
  Sender: FDA-Public Use
  Company Number: None

PATIENT
  Age: 62 Year
  Sex: Female

DRUGS (1)
  1. CAPECITABINE TAB 500MG [Suspect]
     Active Substance: CAPECITABINE
     Indication: PRODUCT USED FOR UNKNOWN INDICATION
     Dosage: 2000MG AM 1-14 DAYS ORAL
     Route: 048
     Dates: start: 20160429, end: 20160511

REACTIONS (7)
  - International normalised ratio decreased [None]
  - Neuropathy peripheral [None]
  - Stomatitis [None]
  - Vein collapse [None]
  - Diarrhoea [None]
  - Gout [None]
  - Hypotension [None]

NARRATIVE: CASE EVENT DATE: 20160511
